FAERS Safety Report 10695534 (Version 3)
Quarter: 2015Q4

REPORT INFORMATION
  Report Type: Report from Study
  Country: US (occurrence: US)
  Receive Date: 20150107
  Receipt Date: 20151015
  Transmission Date: 20160304
  Serious: Yes (Other)
  Sender: FDA-Public Use
  Company Number: US-SA-2015SA000526

PATIENT
  Age: 62 Year
  Sex: Female

DRUGS (3)
  1. AUBAGIO [Suspect]
     Active Substance: TERIFLUNOMIDE
     Indication: MULTIPLE SCLEROSIS
     Route: 065
     Dates: start: 20130111, end: 20130207
  2. AUBAGIO [Suspect]
     Active Substance: TERIFLUNOMIDE
     Indication: MULTIPLE SCLEROSIS
     Route: 048
     Dates: start: 20141106, end: 201501
  3. AVONEX [Concomitant]
     Active Substance: INTERFERON BETA-1A
     Route: 065
     Dates: start: 20130301, end: 20141101

REACTIONS (4)
  - Dyspnoea [Unknown]
  - Coronary artery occlusion [Unknown]
  - Pain in extremity [Recovered/Resolved]
  - Myelitis transverse [Unknown]
